FAERS Safety Report 4673839-5 (Version None)
Quarter: 2005Q2

REPORT INFORMATION
  Report Type: 
  Country: None (occurrence: None)
  Receive Date: 20050523
  Receipt Date: 20041118
  Transmission Date: 20051028
  Serious: Yes (Other)
  Sender: FDA-Public Use
  Company Number: 10066038-NA01-2

PATIENT
  Age: 58 Year
  Sex: Female

DRUGS (3)
  1. LACTATED RINGER'S [Suspect]
     Indication: FLUID REPLACEMENT
     Dosage: KVO, I.V.
     Route: 042
     Dates: start: 20040930, end: 20040930
  2. LACTATED RINGER'S [Suspect]
     Indication: INJECTION SITE PAIN
     Dosage: KVO, I.V.
     Route: 042
     Dates: start: 20040930, end: 20040930
  3. .1CC LIDOCAINE [Concomitant]

REACTIONS (2)
  - RASH GENERALISED [None]
  - URTICARIA [None]
